FAERS Safety Report 12584539 (Version 1)
Quarter: 2016Q3

REPORT INFORMATION
  Report Type: Spontaneous
  Country: US (occurrence: US)
  Receive Date: 20160722
  Receipt Date: 20160722
  Transmission Date: 20161109
  Serious: Yes (Hospitalization, Other)
  Sender: FDA-Public Use
  Company Number: US-PFIZER INC-2016348525

PATIENT
  Age: 28 Year
  Sex: Female
  Weight: 69.85 kg

DRUGS (3)
  1. NEURONTIN [Suspect]
     Active Substance: GABAPENTIN
     Indication: SEIZURE
     Dosage: 300 MG, 3X/DAY
     Route: 048
     Dates: start: 2015
  2. NEURONTIN [Suspect]
     Active Substance: GABAPENTIN
     Indication: BACK PAIN
     Dosage: 400 MG, 2X/DAY
     Route: 048
  3. KEPPRA [Concomitant]
     Active Substance: LEVETIRACETAM
     Indication: SEIZURE
     Dosage: 500 MG, 1X/DAY
     Route: 048
     Dates: start: 201604

REACTIONS (23)
  - Condition aggravated [Unknown]
  - Palpitations [Unknown]
  - Fall [Unknown]
  - Seizure [Recovered/Resolved with Sequelae]
  - Insomnia [Unknown]
  - Loss of consciousness [Unknown]
  - Migraine [Not Recovered/Not Resolved]
  - Blood urine present [Unknown]
  - Feeling abnormal [Unknown]
  - Stress fracture [Not Recovered/Not Resolved]
  - Product quality issue [Unknown]
  - Haemoptysis [Recovering/Resolving]
  - Drug ineffective [Unknown]
  - Anxiety [Unknown]
  - Respiratory tract congestion [Unknown]
  - Back pain [Not Recovered/Not Resolved]
  - Urinary tract infection [Unknown]
  - Dyskinesia [Unknown]
  - Contusion [Unknown]
  - Pyrexia [Recovered/Resolved]
  - Poor quality drug administered [Unknown]
  - Tremor [Unknown]
  - Mood swings [Unknown]

NARRATIVE: CASE EVENT DATE: 201605
